FAERS Safety Report 4833698-4 (Version None)
Quarter: 2005Q4

REPORT INFORMATION
  Report Type: 
  Country: None (occurrence: None)
  Receive Date: 20051114
  Receipt Date: 20051103
  Transmission Date: 20060501
  Serious: Yes (Hospitalization, Other)
  Sender: FDA-Public Use
  Company Number: USA0511112850

PATIENT
  Age: 71 Year
  Sex: Male

DRUGS (3)
  1. FORTEO [Suspect]
     Indication: OSTEOPOROSIS
     Dates: start: 20040101
  2. PREDNISONE [Concomitant]
  3. OXYGEN [Concomitant]

REACTIONS (2)
  - ASTHENIA [None]
  - CATARACT OPERATION [None]
